FAERS Safety Report 5106466-6 (Version None)
Quarter: 2006Q3

REPORT INFORMATION
  Report Type: 
  Country: None (occurrence: None)
  Receive Date: 20060918
  Receipt Date: 20060117
  Transmission Date: 20061208
  Serious: Yes (Death, Disabling)
  Sender: FDA-Public Use
  Company Number: US-BAYER-200615379BWH

PATIENT
  Age: 67 Year
  Sex: Male
  Weight: 43 kg

DRUGS (9)
  1. SORAFENIB [Suspect]
     Indication: METASTATIC RENAL CELL CARCINOMA
     Dosage: TOTAL DAILY DOSE: 800 MG  UNIT DOSE: 200 MG
     Route: 048
     Dates: start: 20051128, end: 20051209
  2. PROPRANOLOL [Concomitant]
     Indication: HYPERTENSION
     Dosage: TOTAL DAILY DOSE: 40 MG  UNIT DOSE: 10 MG
     Route: 048
     Dates: start: 20051119, end: 20051219
  3. PROTONIX [Concomitant]
     Dosage: TOTAL DAILY DOSE: 40 MG  UNIT DOSE: 40 MG
     Route: 048
     Dates: start: 20051114, end: 20051219
  4. OXYCODONE HCL [Concomitant]
     Indication: PAIN
     Dosage: TOTAL DAILY DOSE: 20 MG  UNIT DOSE: 10 MG
     Route: 048
     Dates: start: 20051114, end: 20051219
  5. FLOMAX [Concomitant]
     Dosage: TOTAL DAILY DOSE: 0.4 MG  UNIT DOSE: 0.4 MG
     Route: 048
     Dates: start: 19950101, end: 20051219
  6. ALLOPURINOL [Concomitant]
     Indication: NEPHROLITHIASIS
     Dosage: TOTAL DAILY DOSE: 100 MG  UNIT DOSE: 100 MG
     Route: 048
     Dates: start: 19950101
  7. HYDROCODONE BITARTRATE + ACETAMINOPHEN [Concomitant]
     Indication: PAIN
     Route: 048
     Dates: start: 20051119
  8. FERROUS SULFATE TAB [Concomitant]
     Indication: IRON DEFICIENCY
     Route: 048
     Dates: start: 20051128, end: 20051205
  9. COLACE [Concomitant]
     Indication: CONSTIPATION
     Route: 048
     Dates: start: 20051128

REACTIONS (12)
  - ABDOMINAL DISTENSION [None]
  - ANAEMIA [None]
  - ASCITES [None]
  - BLOOD IRON DECREASED [None]
  - DISEASE PROGRESSION [None]
  - DIZZINESS [None]
  - HEPATIC FAILURE [None]
  - METASTASES TO LIVER [None]
  - METASTATIC RENAL CELL CARCINOMA [None]
  - NAUSEA [None]
  - PORTAL VEIN THROMBOSIS [None]
  - SPLENOMEGALY [None]
